FAERS Safety Report 8805936 (Version 2)
Quarter: 2012Q4

REPORT INFORMATION
  Report Type: Spontaneous
  Country: JP (occurrence: None)
  Receive Date: 20120918
  Receipt Date: 20121004
  Transmission Date: 20130627
  Serious: Yes (Other)
  Sender: FDA-Public Use
  Company Number: JP-2012-16240

PATIENT
  Age: 48 Year
  Sex: Female
  Weight: 86 kg

DRUGS (10)
  1. PLETAAL [Suspect]
     Indication: LACUNAR INFARCTION
     Route: 048
     Dates: start: 2006
  2. PLETAAL [Suspect]
     Indication: ARTERIOSCLEROSIS
     Route: 048
     Dates: start: 2006
  3. ATORVASTATIN (ATORVASTATIN CALCIUM) [Concomitant]
  4. TELMISARTAN (TELMISARTAN) [Concomitant]
  5. CLINIDIPINE (CLINIDIPINE) [Concomitant]
  6. ACARBOSE (ACARBOSE) [Concomitant]
  7. PIOGLITAZONE (PIOGLITAZONE HYDROCHLORIDE) [Concomitant]
  8. ETHYL ICOSAPENTATE (ETHYL ICOSAPENTATE) [Concomitant]
  9. INSULIN ASPART (GENETICAL RECOMBINATION) (INSULIN ASPART (GENETICAL RECOMBINATION) [Concomitant]
  10. FUROSEMIDE [Concomitant]

REACTIONS (1)
  - Vitreous haemorrhage [None]
